FAERS Safety Report 11562293 (Version 1)
Quarter: 2015Q3

REPORT INFORMATION
  Report Type: Spontaneous
  Country: JP (occurrence: JP)
  Receive Date: 20150928
  Receipt Date: 20150928
  Transmission Date: 20151125
  Serious: Yes (Hospitalization)
  Sender: FDA-Public Use
  Company Number: JP-IPCA LABORATORIES LIMITED-IPC201509-000619

PATIENT
  Age: 49 Year
  Sex: Male

DRUGS (5)
  1. AMIODARONE [Concomitant]
     Active Substance: AMIODARONE
  2. HEPARIN SODIUM. [Suspect]
     Active Substance: HEPARIN SODIUM
  3. WARFARIN [Suspect]
     Active Substance: WARFARIN
     Route: 048
  4. CARVEDILOL. [Concomitant]
     Active Substance: CARVEDILOL
  5. LOXOPROFEN SODIUM HYDRATE [Concomitant]
     Active Substance: LOXOPROFEN SODIUM DIHYDRATE

REACTIONS (2)
  - Pericarditis [Recovered/Resolved]
  - Cardiac tamponade [Recovered/Resolved]
